FAERS Safety Report 17331695 (Version 5)
Quarter: 2020Q2

REPORT INFORMATION
  Report Type: Report from Study
  Country: AU (occurrence: AU)
  Receive Date: 20200127
  Receipt Date: 20200406
  Transmission Date: 20200713
  Serious: Yes (Hospitalization)
  Sender: FDA-Public Use
  Company Number: AU-EISAI MEDICAL RESEARCH-EC-2020-069025

PATIENT
  Age: 64 Year
  Sex: Female
  Weight: 67.5 kg

DRUGS (14)
  1. LENVATINIB [Suspect]
     Active Substance: LENVATINIB
     Indication: NON-SMALL CELL LUNG CANCER METASTATIC
     Route: 048
     Dates: start: 20200107, end: 20200120
  2. METHYLDOPA. [Concomitant]
     Active Substance: METHYLDOPA
     Dates: start: 20200110, end: 20200112
  3. METRONIDAZOLE. [Concomitant]
     Active Substance: METRONIDAZOLE
     Dates: start: 20200117, end: 20200124
  4. PANAMAX [Concomitant]
     Active Substance: ACETAMINOPHEN
     Dates: start: 201911
  5. MINIPRESS [Concomitant]
     Active Substance: PRAZOSIN HYDROCHLORIDE
     Dates: start: 20200117, end: 20200124
  6. MOVICOL [Concomitant]
     Active Substance: POLYETHYLENE GLYCOL 3350\POTASSIUM CHLORIDE\SODIUM BICARBONATE\SODIUM CHLORIDE
     Dates: start: 20200121, end: 20200218
  7. MOVICOL [Concomitant]
     Active Substance: POLYETHYLENE GLYCOL 3350\POTASSIUM CHLORIDE\SODIUM BICARBONATE\SODIUM CHLORIDE
     Dates: start: 20200117, end: 20200124
  8. IRBESARTAN. [Concomitant]
     Active Substance: IRBESARTAN
     Dates: start: 201601, end: 20200220
  9. ATORVASTATIN [Concomitant]
     Active Substance: ATORVASTATIN
     Dates: start: 201501, end: 20200125
  10. METRONIDAZOLE. [Concomitant]
     Active Substance: METRONIDAZOLE
     Dates: start: 20200120, end: 20200128
  11. ENDONE [Concomitant]
     Active Substance: OXYCODONE HYDROCHLORIDE
     Dates: start: 201911
  12. LYRICA [Concomitant]
     Active Substance: PREGABALIN
     Dates: start: 201911, end: 20200121
  13. METHYLDOPA. [Concomitant]
     Active Substance: METHYLDOPA
     Dates: start: 20200113, end: 20200204
  14. MINIPRESS [Concomitant]
     Active Substance: PRAZOSIN HYDROCHLORIDE
     Dates: start: 20200121

REACTIONS (1)
  - Malignant neoplasm progression [Not Recovered/Not Resolved]

NARRATIVE: CASE EVENT DATE: 20200122
